FAERS Safety Report 9698588 (Version 2)
Quarter: 2013Q4

REPORT INFORMATION
  Report Type: Spontaneous
  Country: FR (occurrence: FR)
  Receive Date: 20131120
  Receipt Date: 20131206
  Transmission Date: 20140711
  Serious: Yes (Other)
  Sender: FDA-Public Use
  Company Number: FR-PFIZER INC-2013326412

PATIENT
  Sex: Female

DRUGS (2)
  1. EFFEXOR LP [Suspect]
     Dosage: 300 MG, ONCE A DAY IN THE MORNING (4 CAPSULES OF 75 MG)
  2. ALDACTAZINE [Suspect]
     Dosage: 1 DF, ONCE A DAY

REACTIONS (1)
  - Gastric disorder [Unknown]
